FAERS Safety Report 15456665 (Version 2)
Quarter: 2018Q4

REPORT INFORMATION
  Report Type: Report from Study
  Country: ES (occurrence: ES)
  Receive Date: 20181002
  Receipt Date: 20181003
  Transmission Date: 20190204
  Serious: Yes (Other)
  Sender: FDA-Public Use
  Company Number: ES-PFIZER INC-2018389862

PATIENT
  Age: 62 Year
  Sex: Female

DRUGS (9)
  1. TRYPTIZOL [Interacting]
     Active Substance: AMITRIPTYLINE HYDROCHLORIDE
     Dosage: UNK
     Route: 065
  2. TERIPARATIDE [Interacting]
     Active Substance: TERIPARATIDE
     Indication: OSTEOPOROSIS
     Dosage: 20 UG, 1X/DAY
     Route: 058
     Dates: start: 20180614, end: 201808
  3. TRYPTIZOL [Interacting]
     Active Substance: AMITRIPTYLINE HYDROCHLORIDE
     Dosage: 0.5 DF, 1X/DAY
     Route: 065
  4. DACORTIN [Interacting]
     Active Substance: PREDNISONE
     Dosage: 10 MG, UNK
     Route: 065
  5. GABAPENTIN. [Suspect]
     Active Substance: GABAPENTIN
     Indication: PAIN
     Dosage: 1 DF, 2X/DAY
     Route: 065
  6. TRYPTIZOL [Interacting]
     Active Substance: AMITRIPTYLINE HYDROCHLORIDE
     Indication: PAIN
     Dosage: 0.5 DF, 1X/DAY
     Route: 065
  7. DACORTIN [Interacting]
     Active Substance: PREDNISONE
     Indication: AUTOIMMUNE HEPATITIS
     Dosage: 25 MG, WEEKLY (5/WMG)
     Route: 065
  8. GABAPENTIN. [Interacting]
     Active Substance: GABAPENTIN
     Dosage: UNK
     Route: 065
  9. GABAPENTIN. [Interacting]
     Active Substance: GABAPENTIN
     Dosage: 2 DF, 2X/DAY
     Route: 065

REACTIONS (7)
  - Drug interaction [Unknown]
  - Headache [Recovered/Resolved]
  - Vomiting [Recovered/Resolved]
  - Hypothermia [Recovered/Resolved]
  - Feeling abnormal [Recovered/Resolved]
  - Chills [Recovered/Resolved]
  - Sleep disorder [Recovered/Resolved]

NARRATIVE: CASE EVENT DATE: 201807
